FAERS Safety Report 5502497-2 (Version None)
Quarter: 2007Q4

REPORT INFORMATION
  Report Type: 
  Country: None (occurrence: None)
  Receive Date: 20071030
  Receipt Date: 20071025
  Transmission Date: 20080405
  Serious: Yes (Other)
  Sender: FDA-Public Use
  Company Number: US-PFIZER INC-2007089581

PATIENT
  Sex: Male
  Weight: 68.181 kg

DRUGS (4)
  1. LIPITOR [Suspect]
     Indication: CORONARY ARTERY DISEASE
     Dates: start: 20041201, end: 20050601
  2. TOPROL-XL [Concomitant]
  3. ASPIRIN [Concomitant]
  4. LISINOPRIL [Concomitant]

REACTIONS (1)
  - PAIN IN EXTREMITY [None]
